FAERS Safety Report 17840517 (Version 1)
Quarter: 2020Q2

REPORT INFORMATION
  Report Type: Report from Study
  Country: None (occurrence: US)
  Receive Date: 20200529
  Receipt Date: 20200529
  Transmission Date: 20200714
  Serious: No
  Sender: FDA-Public Use
  Company Number: US-BIOVITRUM-2019US1906

PATIENT
  Age: 55 Year
  Sex: Female

DRUGS (9)
  1. FLAXSEED [Concomitant]
     Active Substance: FLAX SEED
  2. KINERET [Suspect]
     Active Substance: ANAKINRA
     Indication: PYREXIA
     Route: 058
     Dates: start: 20190604, end: 20190708
  3. WELLBUTRIN [Concomitant]
     Active Substance: BUPROPION HYDROCHLORIDE
  4. LEVOTHYROXINE. [Concomitant]
     Active Substance: LEVOTHYROXINE
  5. EVENING PRIMROSE [Concomitant]
  6. KINERET [Suspect]
     Active Substance: ANAKINRA
     Indication: CONNECTIVE TISSUE DISORDER
  7. CALCIUM WITH VITAMIN D [Concomitant]
     Active Substance: CALCIUM\VITAMIN D
  8. HAIR, SKIN AND NAILS SUPPLEMENTS [Concomitant]
  9. FISH OIL [Concomitant]
     Active Substance: FISH OIL

REACTIONS (2)
  - Off label use [Unknown]
  - Erythema [Recovered/Resolved]

NARRATIVE: CASE EVENT DATE: 201906
